FAERS Safety Report 7824033-8 (Version None)
Quarter: 2011Q4

REPORT INFORMATION
  Report Type: 
  Country: None (occurrence: None)
  Receive Date: 20111015
  Receipt Date: 20111005
  Transmission Date: 20120403
  Serious: Yes (Other)
  Sender: FDA-Public Use
  Company Number: AUR-APL-2011-05362

PATIENT
  Age: 36 Year
  Sex: Female

DRUGS (3)
  1. PROGRAF [Suspect]
     Indication: LIVER TRANSPLANT
     Dosage: (10 MG, 1 D),ORAL
     Route: 048
  2. SERTRALINE HYDROCHLORIDE [Suspect]
     Indication: PRODUCT USED FOR UNKNOWN INDICATION
     Dosage: (100 MG, 1 D),ORAL
     Route: 048
  3. AZATHIOPRINE [Suspect]
     Indication: PRODUCT USED FOR UNKNOWN INDICATION
     Dosage: (1 D)

REACTIONS (4)
  - DRUG LEVEL BELOW THERAPEUTIC [None]
  - MATERNAL DRUGS AFFECTING FOETUS [None]
  - TREATMENT NONCOMPLIANCE [None]
  - INTRA-UTERINE DEATH [None]
